FAERS Safety Report 11590282 (Version 1)
Quarter: 2015Q4

REPORT INFORMATION
  Report Type: Report from Study
  Country: BR (occurrence: BR)
  Receive Date: 20151002
  Receipt Date: 20151002
  Transmission Date: 20160304
  Serious: Yes (Other)
  Sender: FDA-Public Use
  Company Number: PHHY2015BR118784

PATIENT
  Sex: Female
  Weight: 79 kg

DRUGS (1)
  1. EXELON PATCH [Suspect]
     Active Substance: RIVASTIGMINE
     Indication: MEMORY IMPAIRMENT
     Dosage: 1 DF (9.5 MG), QD
     Route: 062

REACTIONS (2)
  - Vascular dementia [Unknown]
  - Application site discolouration [Unknown]
